FAERS Safety Report 21973885 (Version 6)
Quarter: 2023Q4

REPORT INFORMATION
  Report Type: Report from Study
  Country: US (occurrence: US)
  Receive Date: 20230209
  Receipt Date: 20231003
  Transmission Date: 20240109
  Serious: Yes (Hospitalization)
  Sender: FDA-Public Use
  Company Number: US-GLAXOSMITHKLINE-US2023GSK017631

PATIENT

DRUGS (10)
  1. LAMOTRIGINE [Suspect]
     Active Substance: LAMOTRIGINE
     Indication: Bipolar disorder
     Dosage: 50 MG, QD
     Route: 048
     Dates: start: 20221128, end: 20221216
  2. LAMOTRIGINE [Suspect]
     Active Substance: LAMOTRIGINE
     Dosage: 100 MG, QD
     Route: 048
     Dates: start: 20221216
  3. ABILIFY [Suspect]
     Active Substance: ARIPIPRAZOLE
     Indication: Bipolar disorder
     Dosage: 6 MG, QD 17-NOV-2022 00:00
     Route: 048
  4. PRAZOSIN [Concomitant]
     Active Substance: PRAZOSIN
     Indication: Nightmare
     Dosage: UNK
     Route: 048
     Dates: start: 20221117, end: 20230115
  5. PRAZOSIN [Concomitant]
     Active Substance: PRAZOSIN
     Indication: Bipolar II disorder
  6. LEXAPRO [Concomitant]
     Active Substance: ESCITALOPRAM OXALATE
     Indication: Anxiety
     Dosage: UNK
     Route: 048
     Dates: start: 20220505
  7. FLOVENT [Concomitant]
     Active Substance: FLUTICASONE PROPIONATE
     Indication: Asthma
     Dosage: 2 PUFF, QD
     Route: 048
     Dates: start: 20221117
  8. LO LOESTRIN FE [Concomitant]
     Active Substance: ETHINYL ESTRADIOL\NORETHINDRONE ACETATE
     Indication: Contraception
     Dosage: UNK
     Route: 048
     Dates: start: 20220314
  9. DAPSONE [Concomitant]
     Active Substance: DAPSONE
     Indication: Acne
     Dosage: UNK
     Route: 061
     Dates: start: 20210402
  10. FLUTICASONE PROPIONATE [Concomitant]
     Active Substance: FLUTICASONE PROPIONATE
     Indication: Asthma
     Dosage: UNK
     Route: 048
     Dates: start: 2019

REACTIONS (1)
  - Depression [Recovering/Resolving]

NARRATIVE: CASE EVENT DATE: 20221210
